FAERS Safety Report 20012874 (Version 1)
Quarter: 2021Q4

REPORT INFORMATION
  Report Type: Other
  Country: US (occurrence: US)
  Receive Date: 20211029
  Receipt Date: 20211029
  Transmission Date: 20220303
  Serious: Yes (Life-Threatening, Hospitalization, Disabling, Other)
  Sender: FDA-Public Use
  Company Number: US-C B FLEET CO INC-202110-US-003427

PATIENT
  Age: 39 Year
  Sex: Female

DRUGS (1)
  1. GOODYS EXTRA STRENGTH [Suspect]
     Active Substance: ACETAMINOPHEN\ASPIRIN\CAFFEINE
     Indication: Headache
     Dosage: DOSE UNKNOWN

REACTIONS (4)
  - Faeces discoloured [Recovered/Resolved]
  - Discoloured vomit [Recovered/Resolved]
  - Gastric ulcer [Recovered/Resolved]
  - Dyspnoea [Recovered/Resolved]
